FAERS Safety Report 14599408 (Version 1)
Quarter: 2018Q1

REPORT INFORMATION
  Report Type: Report from Study
  Country: ES (occurrence: ES)
  Receive Date: 20180305
  Receipt Date: 20180305
  Transmission Date: 20180509
  Serious: Yes (Other)
  Sender: FDA-Public Use
  Company Number: ES-JNJFOC-20171101096

PATIENT
  Age: 74 Year
  Sex: Male
  Weight: 75 kg

DRUGS (3)
  1. RIVAROXABAN [Suspect]
     Active Substance: RIVAROXABAN
     Indication: CEREBROVASCULAR ACCIDENT PROPHYLAXIS
     Route: 048
     Dates: start: 20160421
  2. ASPIRIN. [Concomitant]
     Active Substance: ASPIRIN
     Dosage: DOSAGE: UNKNOWN
     Route: 065
     Dates: end: 20171127
  3. RIVAROXABAN [Suspect]
     Active Substance: RIVAROXABAN
     Indication: EMBOLIC STROKE
     Route: 048
     Dates: start: 20160421

REACTIONS (2)
  - Renal impairment [Recovered/Resolved]
  - Rash [Recovered/Resolved with Sequelae]

NARRATIVE: CASE EVENT DATE: 20170917
